FAERS Safety Report 8580411-3 (Version None)
Quarter: 2012Q3

REPORT INFORMATION
  Report Type: 
  Country: None (occurrence: None)
  Receive Date: 20120808
  Receipt Date: 20120802
  Transmission Date: 20120928
  Serious: Yes (Other)
  Sender: FDA-Public Use
  Company Number: US-PFIZER INC-2012188424

PATIENT
  Age: 40 Year
  Sex: Female

DRUGS (10)
  1. NEURONTIN [Suspect]
     Dosage: 300 MG (1 TAB) TID X 3RD WK ONWARDS
     Route: 048
  2. FLUOXETINE [Concomitant]
     Dosage: 20 MG, 1X/DAY IN AFTERNOON
     Route: 048
     Dates: start: 20120719
  3. GLUCOTROL XL [Suspect]
     Dosage: 10 MG, 1X/DAY (10 MG, ONCE DAILY WITH BREAKFAST)
     Route: 048
     Dates: start: 20120719
  4. ATENOLOL [Concomitant]
     Dosage: 25 MG, 1X/DAY
     Route: 048
     Dates: start: 20120719
  5. ESTRADIOL [Concomitant]
     Dosage: 1 MG, 1X/DAY
     Route: 048
     Dates: start: 20120524
  6. NEURONTIN [Suspect]
     Dosage: 300 MG (1 TAB) BID X 2ND WK
     Route: 049
  7. METFORMIN [Concomitant]
     Dosage: 1000 MG, 1 TABLET 2 TIMES PER DAY WITH MORNING AND EVENING MEALS
     Route: 048
     Dates: start: 20120719
  8. LISINOPRIL AND HYDROCHLOROTHIAZIDE [Concomitant]
     Dosage: 20-12.5 MG, 2 TABLETS, 1X/DAY
     Route: 048
     Dates: start: 20120719
  9. NEURONTIN [Suspect]
     Dosage: 300 MG (1TAB) QD X 1ST WK
     Route: 048
     Dates: start: 20120430
  10. AMITRIPTYLINE [Concomitant]
     Dosage: 50 MG, 1X/DAY
     Route: 048
     Dates: start: 20120719

REACTIONS (2)
  - AUTONOMIC NEUROPATHY [None]
  - MENOPAUSAL SYMPTOMS [None]
